FAERS Safety Report 15355845 (Version 1)
Quarter: 2018Q3

REPORT INFORMATION
  Report Type: Spontaneous
  Country: ID (occurrence: ID)
  Receive Date: 20180906
  Receipt Date: 20180906
  Transmission Date: 20181010
  Serious: Yes (Life-Threatening, Other)
  Sender: FDA-Public Use
  Company Number: ID-ASTRAZENECA-2018SF10573

PATIENT
  Age: 40 Year
  Sex: Female
  Weight: 85 kg

DRUGS (5)
  1. BRILINTA [Suspect]
     Active Substance: TICAGRELOR
     Indication: ACUTE CORONARY SYNDROME
     Dosage: 180 MG, ONCE (LOADING DOSE)
     Route: 048
  2. BRILINTA [Suspect]
     Active Substance: TICAGRELOR
     Indication: ACUTE CORONARY SYNDROME
     Dosage: 90 MG, TWO TIMES A DAY (MAINTENANCE DOSE)
     Route: 048
  3. ASPIRIN. [Concomitant]
     Active Substance: ASPIRIN
     Indication: ANTIPLATELET THERAPY
     Route: 048
  4. CLOPIDOGREL [Concomitant]
     Active Substance: CLOPIDOGREL BISULFATE
  5. ASPIRIN. [Concomitant]
     Active Substance: ASPIRIN
     Indication: ANTIPLATELET THERAPY
     Route: 048

REACTIONS (2)
  - Myocardial ischaemia [Unknown]
  - Haemoptysis [Recovered/Resolved]
